FAERS Safety Report 7175048 (Version 8)
Quarter: 2015Q4

REPORT INFORMATION
  Report Type: Report from Study
  Country: US (occurrence: US)
  Receive Date: 20091112
  Receipt Date: 20151127
  Transmission Date: 20160305
  Serious: Yes (Hospitalization)
  Sender: FDA-Public Use
  Company Number: US-JNJFOC-20091102007

PATIENT
  Age: 10 Year
  Sex: Female
  Weight: 32.93 kg

DRUGS (24)
  1. MULTIVITAMINS [Concomitant]
     Active Substance: VITAMINS
  2. ACETAMINOPHEN AND CODEINE [Concomitant]
     Active Substance: ACETAMINOPHEN\CODEINE PHOSPHATE
  3. AUGMENTIN [Concomitant]
     Active Substance: AMOXICILLIN\CLAVULANATE POTASSIUM
  4. INFLIXIMAB [Suspect]
     Active Substance: INFLIXIMAB
     Indication: INFLAMMATORY BOWEL DISEASE
     Route: 042
     Dates: start: 20060315
  5. IRON [Concomitant]
     Active Substance: IRON
     Route: 048
  6. KEFLEX [Concomitant]
     Active Substance: CEPHALEXIN
  7. PENTASA [Concomitant]
     Active Substance: MESALAMINE
     Route: 048
  8. INFLIXIMAB [Suspect]
     Active Substance: INFLIXIMAB
     Indication: INFLAMMATORY BOWEL DISEASE
     Route: 042
     Dates: start: 2007, end: 20080103
  9. HUMIRA [Concomitant]
     Active Substance: ADALIMUMAB
  10. ZINC SULFATE [Concomitant]
     Active Substance: ZINC SULFATE\ZINC SULFATE ANHYDROUS
  11. KETOCONAZOLE. [Concomitant]
     Active Substance: KETOCONAZOLE
  12. ANTIBIOTICS [Concomitant]
     Active Substance: UNSPECIFIED INGREDIENT
     Indication: INFLAMMATORY BOWEL DISEASE
  13. MESALAZINE [Concomitant]
     Active Substance: MESALAMINE
     Indication: INFLAMMATORY BOWEL DISEASE
  14. TYLENOL [Concomitant]
     Active Substance: ACETAMINOPHEN
  15. FLUCONAZOLE. [Concomitant]
     Active Substance: FLUCONAZOLE
  16. AQUAPHOR [Concomitant]
     Active Substance: PETROLATUM
     Route: 061
  17. INFLIXIMAB [Suspect]
     Active Substance: INFLIXIMAB
     Indication: INFLAMMATORY BOWEL DISEASE
     Route: 042
     Dates: start: 20070301, end: 200705
  18. AUGMENTIN [Concomitant]
     Active Substance: AMOXICILLIN\CLAVULANATE POTASSIUM
  19. ATIVAN [Concomitant]
     Active Substance: LORAZEPAM
  20. OMEGA 3 FATTY ACIDS [Concomitant]
     Active Substance: OMEGA-3 FATTY ACIDS
  21. KENALOG [Concomitant]
     Active Substance: TRIAMCINOLONE ACETONIDE
  22. NYSTATIN POWDER [Concomitant]
  23. ASPIRIN. [Concomitant]
     Active Substance: ASPIRIN
  24. PERCOCET [Concomitant]
     Active Substance: ACETAMINOPHEN\OXYCODONE HYDROCHLORIDE
     Route: 048

REACTIONS (4)
  - Anaphylactic reaction [Unknown]
  - Septic shock [Recovered/Resolved]
  - Device related infection [Recovered/Resolved]
  - Surgery [Unknown]

NARRATIVE: CASE EVENT DATE: 200705
